FAERS Safety Report 6321658-6 (Version None)
Quarter: 2009Q3

REPORT INFORMATION
  Report Type: 
  Country: None (occurrence: None)
  Receive Date: 20090821
  Receipt Date: 20090821
  Transmission Date: 20100115
  Serious: No
  Sender: FDA-Public Use
  Company Number: None

PATIENT
  Age: 75 Year
  Sex: Female
  Weight: 76.2043 kg

DRUGS (1)
  1. SINGULAIR [Suspect]
     Indication: HYPERSENSITIVITY
     Dosage: 10MG ONE PER DAY
     Dates: start: 20090729, end: 20090801

REACTIONS (3)
  - ERYTHEMA [None]
  - PRURITUS GENERALISED [None]
  - URTICARIA [None]
